FAERS Safety Report 21373376 (Version 1)
Quarter: 2022Q3

REPORT INFORMATION
  Report Type: Spontaneous
  Country: US (occurrence: US)
  Receive Date: 20220925
  Receipt Date: 20220925
  Transmission Date: 20221026
  Serious: No
  Sender: FDA-Public Use
  Company Number: US-SA-SAC20220922000317

PATIENT
  Sex: Female

DRUGS (3)
  1. DUPIXENT [Suspect]
     Active Substance: DUPILUMAB
     Dosage: 300 MG OTHER
     Route: 058
  2. ALTACE [Concomitant]
     Active Substance: RAMIPRIL
     Indication: Blood pressure measurement
  3. HYDROCHLOROTHIAZIDE [Concomitant]
     Active Substance: HYDROCHLOROTHIAZIDE

REACTIONS (5)
  - Nausea [Unknown]
  - Hyperhidrosis [Unknown]
  - Cold sweat [Unknown]
  - Herpes virus infection [Unknown]
  - Injection site pain [Unknown]
